FAERS Safety Report 5798444-9 (Version None)
Quarter: 2008Q2

REPORT INFORMATION
  Report Type: 
  Country: None (occurrence: None)
  Receive Date: 20080630
  Receipt Date: 20080619
  Transmission Date: 20081010
  Serious: Yes (Other)
  Sender: FDA-Public Use
  Company Number: 2008AP000635

PATIENT
  Age: 36 Year
  Sex: Female

DRUGS (9)
  1. PAROXETINE HCL [Suspect]
     Dosage: 60 MG, QD; PO, 60 MG, QD; PO, 25 MG, QD; PO, 45 MG, QD; PO, 10 MG, LIFQ QD; PO,
     Route: 048
     Dates: start: 19970801, end: 20030901
  2. PAROXETINE HCL [Suspect]
     Dosage: 60 MG, QD; PO, 60 MG, QD; PO, 25 MG, QD; PO, 45 MG, QD; PO, 10 MG, LIFQ QD; PO,
     Route: 048
     Dates: end: 20031001
  3. PAROXETINE HCL [Suspect]
     Dosage: 60 MG, QD; PO, 60 MG, QD; PO, 25 MG, QD; PO, 45 MG, QD; PO, 10 MG, LIFQ QD; PO,
     Route: 048
     Dates: start: 20030901
  4. PAROXETINE HCL [Suspect]
     Dosage: 60 MG, QD; PO, 60 MG, QD; PO, 25 MG, QD; PO, 45 MG, QD; PO, 10 MG, LIFQ QD; PO,
     Route: 048
     Dates: start: 20031001
  5. PAROXETINE HCL [Suspect]
     Dosage: 60 MG, QD; PO, 60 MG, QD; PO, 25 MG, QD; PO, 45 MG, QD; PO, 10 MG, LIFQ QD; PO,
     Route: 048
     Dates: start: 20031001
  6. LORAZEPAM [Concomitant]
  7. FLUOXETINE HCL [Concomitant]
  8. DAPSONE [Concomitant]
  9. TRIAMCINOLONE (TRIAMCLINOLONE) [Concomitant]

REACTIONS (35)
  - AGGRESSION [None]
  - ALTERED VISUAL DEPTH PERCEPTION [None]
  - ANGER [None]
  - COELIAC DISEASE [None]
  - CRYING [None]
  - DERMATITIS HERPETIFORMIS [None]
  - DIABETES MELLITUS INADEQUATE CONTROL [None]
  - DIABETIC RETINOPATHY [None]
  - DISSOCIATION [None]
  - DISTURBANCE IN ATTENTION [None]
  - FLAT AFFECT [None]
  - HOMICIDAL IDEATION [None]
  - INFLUENZA [None]
  - INTENTIONAL OVERDOSE [None]
  - INTENTIONAL SELF-INJURY [None]
  - LETHARGY [None]
  - LOSS OF EMPLOYMENT [None]
  - LOSS OF LIBIDO [None]
  - MEMORY IMPAIRMENT [None]
  - MOOD SWINGS [None]
  - NIGHTMARE [None]
  - OVERDOSE [None]
  - PALPITATIONS [None]
  - PANIC ATTACK [None]
  - PANIC REACTION [None]
  - PARANOIA [None]
  - PERSONALITY CHANGE [None]
  - PRURITUS [None]
  - SKIN DISORDER [None]
  - SLEEP DISORDER [None]
  - SUICIDAL IDEATION [None]
  - SUICIDE ATTEMPT [None]
  - VISUAL DISTURBANCE [None]
  - WEIGHT DECREASED [None]
  - WITHDRAWAL SYNDROME [None]
